FAERS Safety Report 4394987-3 (Version None)
Quarter: 2004Q3

REPORT INFORMATION
  Report Type: 
  Country: None (occurrence: None)
  Receive Date: 20040706
  Receipt Date: 20040623
  Transmission Date: 20050211
  Serious: Yes (Hospitalization)
  Sender: FDA-Public Use
  Company Number: 2004036670

PATIENT
  Age: 66 Year
  Sex: Female

DRUGS (4)
  1. LIPITOR [Suspect]
     Indication: HYPERLIPIDAEMIA
     Dosage: 10 MG (1 IN 1D), ORAL
     Route: 048
     Dates: start: 20030422, end: 20040407
  2. ETHYL ICOSAPENTATE (ETHYLICOSAPENTATE) [Concomitant]
  3. BENIDIPINE HYDROCHLORIDE(BENIDIPINE HYDROCHLORIDE) [Concomitant]
  4. ORGAN LYSATE, STANDARIZED (ORGAN LYSATE, STANDARIZED) [Concomitant]

REACTIONS (8)
  - BLOOD PRESSURE INCREASED [None]
  - CONVULSION [None]
  - DYSGEUSIA [None]
  - GASTRIC ULCER [None]
  - HEADACHE [None]
  - MUSCULOSKELETAL STIFFNESS [None]
  - RESPIRATORY DISORDER [None]
  - VOMITING [None]
